FAERS Safety Report 17682109 (Version 1)
Quarter: 2020Q2

REPORT INFORMATION
  Report Type: Spontaneous
  Country: JP (occurrence: JP)
  Receive Date: 20200418
  Receipt Date: 20200418
  Transmission Date: 20200714
  Serious: Yes (Other)
  Sender: FDA-Public Use
  Company Number: JP-ACCORD-178165

PATIENT
  Age: 66 Year
  Sex: Female

DRUGS (1)
  1. METHOTREXATE. [Suspect]
     Active Substance: METHOTREXATE
     Indication: PSORIATIC ARTHROPATHY
     Dosage: MORE THAN 12 YEARS

REACTIONS (2)
  - Ileal ulcer [Recovered/Resolved with Sequelae]
  - Epstein-Barr virus associated lymphoproliferative disorder [Recovered/Resolved]
